FAERS Safety Report 5489209-6 (Version None)
Quarter: 2007Q4

REPORT INFORMATION
  Report Type: 
  Country: None (occurrence: None)
  Receive Date: 20071016
  Receipt Date: 20071001
  Transmission Date: 20080405
  Serious: Yes (Death, Life-Threatening, Hospitalization, Other)
  Sender: FDA-Public Use
  Company Number: PAR_01735_2007

PATIENT
  Sex: Male
  Weight: 92.2 kg

DRUGS (14)
  1. MEGACE ES [Suspect]
     Indication: ANOREXIA
     Dosage: 625 MG/5 ML ORAL
     Route: 048
     Dates: start: 20070814
  2. TOPROL-XL [Concomitant]
  3. LIPITOR [Concomitant]
  4. COUMADIN [Concomitant]
  5. PREVACID [Concomitant]
  6. VALTREX [Concomitant]
  7. ZESTRIL [Concomitant]
  8. HYDROCORTISONE [Concomitant]
  9. KETOCONAZOLE [Concomitant]
  10. LUMIGAN [Concomitant]
  11. ALPHAGAN [Concomitant]
  12. LUPRON [Concomitant]
  13. FOLIC ACID [Concomitant]
  14. CALCIUM [Concomitant]

REACTIONS (11)
  - AREFLEXIA [None]
  - ASPIRATION [None]
  - BRONCHOPLEURAL FISTULA [None]
  - INTERSTITIAL LUNG DISEASE [None]
  - LUNG CONSOLIDATION [None]
  - PNEUMOMEDIASTINUM [None]
  - PNEUMOTHORAX [None]
  - PULMONARY EMBOLISM [None]
  - PULMONARY FIBROSIS [None]
  - RESPIRATORY DISTRESS [None]
  - SUBCUTANEOUS EMPHYSEMA [None]
